FAERS Safety Report 16413931 (Version 1)
Quarter: 2019Q2

REPORT INFORMATION
  Report Type: Spontaneous
  Country: US (occurrence: US)
  Receive Date: 20190611
  Receipt Date: 20190611
  Transmission Date: 20190711
  Serious: No
  Sender: FDA-Public Use
  Company Number: US-ADAAP-201900100

PATIENT
  Age: 67 Year
  Sex: Female
  Weight: 97.4 kg

DRUGS (1)
  1. NETSPOT [Suspect]
     Active Substance: DOTATATE GALLIUM GA-68
     Indication: POSITRON EMISSION TOMOGRAM
     Route: 042
     Dates: start: 20190507, end: 20190507

REACTIONS (1)
  - Scan gallium abnormal [Recovered/Resolved]

NARRATIVE: CASE EVENT DATE: 20190507
